FAERS Safety Report 17093059 (Version 1)
Quarter: 2019Q4

REPORT INFORMATION
  Report Type: Spontaneous
  Country: SE (occurrence: SE)
  Receive Date: 20191129
  Receipt Date: 20191129
  Transmission Date: 20200122
  Serious: Yes (Hospitalization)
  Sender: FDA-Public Use
  Company Number: SE-ASTRAZENECA-2019SF67266

PATIENT
  Sex: Female

DRUGS (7)
  1. LAMOTRIGINE. [Suspect]
     Active Substance: LAMOTRIGINE
     Dosage: 400.0MG UNKNOWN
     Route: 048
     Dates: start: 20181119, end: 20181119
  2. ZOPICLONE [Suspect]
     Active Substance: ZOPICLONE
     Dosage: 15.0MG UNKNOWN
     Route: 048
     Dates: start: 20181119, end: 20181119
  3. MELATONIN [Suspect]
     Active Substance: MELATONIN
     Dosage: 20.0MG UNKNOWN
     Route: 048
     Dates: start: 20181119, end: 20181119
  4. ALIMEMAZINE [Suspect]
     Active Substance: TRIMEPRAZINE
     Dosage: 240.0MG UNKNOWN
     Route: 048
     Dates: start: 20181119, end: 20181119
  5. NYSTIMEX [Suspect]
     Active Substance: NYSTATIN
     Route: 048
     Dates: start: 20181119, end: 20181119
  6. OMEPRAZOLE. [Suspect]
     Active Substance: OMEPRAZOLE
     Route: 048
     Dates: start: 20181119, end: 20181119
  7. LERGIGAN (PROMETHAZINE HYDROCHLORIDE) [Suspect]
     Active Substance: PROMETHAZINE HYDROCHLORIDE
     Dosage: 200.0MG UNKNOWN
     Route: 048
     Dates: start: 20181119, end: 20181119

REACTIONS (3)
  - Intentional self-injury [Unknown]
  - Fatigue [Unknown]
  - Intentional overdose [Unknown]

NARRATIVE: CASE EVENT DATE: 20181119
